FAERS Safety Report 6371562-2 (Version None)
Quarter: 2009Q3

REPORT INFORMATION
  Report Type: 
  Country: None (occurrence: None)
  Receive Date: 20090923
  Receipt Date: 20080725
  Transmission Date: 20100115
  Serious: Yes (Hospitalization)
  Sender: FDA-Public Use
  Company Number: US-ASTRAZENECA-2007UW18502

PATIENT
  Age: 29 Year
  Sex: Female

DRUGS (5)
  1. SEROQUEL [Suspect]
     Route: 048
     Dates: end: 20080721
  2. AMBIEN [Concomitant]
  3. ATIVAN [Concomitant]
  4. NAPROSYN [Concomitant]
  5. VALIUM [Concomitant]
     Dosage: 10 MG BID, PRN

REACTIONS (1)
  - PANCREATITIS [None]
